FAERS Safety Report 12936310 (Version 1)
Quarter: 2016Q4

REPORT INFORMATION
  Report Type: Spontaneous
  Country: US (occurrence: US)
  Receive Date: 20161114
  Receipt Date: 20161114
  Transmission Date: 20170207
  Serious: Yes (Hospitalization)
  Sender: FDA-Public Use
  Company Number: US-ELI_LILLY_AND_COMPANY-US201607009100

PATIENT
  Age: 27 Year
  Sex: Female
  Weight: 161 kg

DRUGS (1)
  1. CYMBALTA [Suspect]
     Active Substance: DULOXETINE HYDROCHLORIDE
     Indication: DEPRESSION
     Dosage: 30 MG, QD
     Route: 065
     Dates: end: 201207

REACTIONS (13)
  - Affect lability [Recovered/Resolved]
  - Paraesthesia [Unknown]
  - Confusional state [Unknown]
  - Abnormal behaviour [Unknown]
  - Flight of ideas [Unknown]
  - Insomnia [Recovered/Resolved]
  - Hallucination, auditory [Unknown]
  - Aggression [Recovered/Resolved]
  - Irritability [Unknown]
  - Hypomania [Unknown]
  - Drug withdrawal syndrome [Unknown]
  - Fatigue [Unknown]
  - Agitation [Unknown]

NARRATIVE: CASE EVENT DATE: 201207
